FAERS Safety Report 5285897-8 (Version None)
Quarter: 2007Q2

REPORT INFORMATION
  Report Type: 
  Country: None (occurrence: None)
  Receive Date: 20070404
  Receipt Date: 20070330
  Transmission Date: 20071010
  Serious: Yes (Hospitalization)
  Sender: FDA-Public Use
  Company Number: CH-BAYER-200711892GDS

PATIENT
  Age: 47 Year
  Sex: Female

DRUGS (6)
  1. MOXIFLOXACIN HCL [Suspect]
     Indication: TUBERCULOSIS
     Dosage: TOTAL DAILY DOSE: 400 MG  UNIT DOSE: 400 MG
     Route: 048
     Dates: start: 20070201, end: 20070309
  2. ISONIAZID [Suspect]
     Indication: TUBERCULOSIS
     Dosage: TOTAL DAILY DOSE: 300 MG
     Route: 048
     Dates: start: 20070201, end: 20070309
  3. PYRAZINAMIDE [Suspect]
     Indication: TUBERCULOSIS
     Dosage: TOTAL DAILY DOSE: 1500 MG
     Route: 048
     Dates: start: 20070201, end: 20070309
  4. ETHAMBUTOL HYDROCHLORIDE [Suspect]
     Indication: TUBERCULOSIS
     Dosage: TOTAL DAILY DOSE: 900 MG
     Route: 048
     Dates: start: 20070201, end: 20070309
  5. SAQUINAVIR [Concomitant]
     Indication: HIV INFECTION
     Dosage: TOTAL DAILY DOSE: 2000 MG
     Route: 048
  6. RITONAVIR/LOPINAVIR [Concomitant]
     Indication: HIV INFECTION
     Route: 048

REACTIONS (9)
  - ALANINE AMINOTRANSFERASE INCREASED [None]
  - ASPARTATE AMINOTRANSFERASE INCREASED [None]
  - BLOOD ALKALINE PHOSPHATASE INCREASED [None]
  - BLOOD AMYLASE INCREASED [None]
  - BLOOD BILIRUBIN INCREASED [None]
  - GAMMA-GLUTAMYLTRANSFERASE INCREASED [None]
  - LIPASE INCREASED [None]
  - MIXED HEPATOCELLULAR-CHOLESTATIC INJURY [None]
  - PANCREATIC ENZYMES INCREASED [None]
